FAERS Safety Report 4587053-5 (Version None)
Quarter: 2005Q1

REPORT INFORMATION
  Report Type: 
  Country: None (occurrence: None)
  Receive Date: 20050214
  Receipt Date: 20050131
  Transmission Date: 20050727
  Serious: Yes (Hospitalization, Disabling)
  Sender: FDA-Public Use
  Company Number: EMR64300001-1

PATIENT
  Age: 66 Year
  Sex: Male

DRUGS (7)
  1. NIASPAN [Suspect]
     Indication: HYPERLIPIDAEMIA
     Dosage: 1000 MG QHS PO
     Route: 048
     Dates: start: 20040730, end: 20040805
  2. ATENOLOL [Concomitant]
  3. ENALAPRIL [Concomitant]
  4. ALLOPURINOL [Concomitant]
  5. ACETYLSALICYLIC ACID [Concomitant]
  6. DICLOFENAC RESINATE [Concomitant]
  7. SIMVASTATIN [Concomitant]

REACTIONS (6)
  - ASTHENIA [None]
  - CEREBRAL INFARCTION [None]
  - FALL [None]
  - JOINT INJURY [None]
  - TRANSIENT ISCHAEMIC ATTACK [None]
  - VERTIGO [None]
